FAERS Safety Report 6544323-9 (Version None)
Quarter: 2010Q1

REPORT INFORMATION
  Report Type: 
  Country: None (occurrence: None)
  Receive Date: 20100120
  Receipt Date: 20100120
  Transmission Date: 20100710
  Serious: Yes (Other)
  Sender: FDA-Public Use
  Company Number: None

PATIENT
  Age: 16 Year
  Sex: Female
  Weight: 68.0396 kg

DRUGS (1)
  1. TOPIRAMATE [Suspect]
     Dosage: 25 MG BID PO
     Route: 048
     Dates: start: 20091223, end: 20100113

REACTIONS (10)
  - DERMATITIS [None]
  - GAIT DISTURBANCE [None]
  - GRIP STRENGTH DECREASED [None]
  - HAND DEFORMITY [None]
  - LETHARGY [None]
  - NEUROLOGICAL SYMPTOM [None]
  - PAIN [None]
  - PAIN IN EXTREMITY [None]
  - POLYDIPSIA [None]
  - TONGUE DISORDER [None]
